FAERS Safety Report 13418442 (Version 2)
Quarter: 2017Q2

REPORT INFORMATION
  Report Type: Spontaneous
  Country: US (occurrence: US)
  Receive Date: 20170408
  Receipt Date: 20170408
  Transmission Date: 20170830
  Serious: Yes (Other)
  Sender: FDA-Public Use
  Company Number: PHEH2017US009670

PATIENT
  Age: 88 Year
  Sex: Female
  Weight: 54.43 kg

DRUGS (4)
  1. PALBOCICLIB [Suspect]
     Active Substance: PALBOCICLIB
     Indication: BREAST CANCER
     Dosage: 125 MG (21 DAYS ON AND 7 DAYS OFF)
     Route: 048
  2. LETROZOLE. [Suspect]
     Active Substance: LETROZOLE
     Indication: BREAST CANCER
     Dosage: 2.5 MG, QD
     Route: 048
     Dates: start: 2013, end: 201608
  3. WARFARIN [Suspect]
     Active Substance: WARFARIN
     Indication: ANTICOAGULANT THERAPY
     Dosage: 5 MG (DOSE VARIES DEPENDING ON LEVELS)
     Route: 065
     Dates: start: 2004
  4. WARFARIN [Suspect]
     Active Substance: WARFARIN
     Dosage: REDUCED DOSE
     Route: 065

REACTIONS (6)
  - Drug ineffective [Unknown]
  - Drug level increased [Unknown]
  - Body height decreased [Unknown]
  - Osteoporosis [Unknown]
  - Pleural effusion [Unknown]
  - Epistaxis [Unknown]

NARRATIVE: CASE EVENT DATE: 20170320
